FAERS Safety Report 17249495 (Version 3)
Quarter: 2020Q2

REPORT INFORMATION
  Report Type: Report from Study
  Country: US (occurrence: US)
  Receive Date: 20200108
  Receipt Date: 20200529
  Transmission Date: 20200713
  Serious: Yes (Hospitalization)
  Sender: FDA-Public Use
  Company Number: US-EXELIXIS-XL18420026482

PATIENT
  Age: 72 Year
  Sex: Male
  Weight: 66.3 kg

DRUGS (13)
  1. PHOSPHORUS [Concomitant]
     Active Substance: PHOSPHORUS
  2. ONDANSETRON [Concomitant]
     Active Substance: ONDANSETRON
  3. PERCOCET [Concomitant]
     Active Substance: ACETAMINOPHEN\OXYCODONE HYDROCHLORIDE
  4. SENNA [Concomitant]
     Active Substance: SENNA LEAF\SENNOSIDES\SENNOSIDES A AND B
  5. MULTIVITAMIN [Concomitant]
     Active Substance: VITAMINS
  6. PREDNISONE. [Concomitant]
     Active Substance: PREDNISONE
  7. VITAMIN B1 [Concomitant]
     Active Substance: THIAMINE HYDROCHLORIDE
  8. ATEZOLIZUMAB. [Suspect]
     Active Substance: ATEZOLIZUMAB
     Indication: HORMONE-REFRACTORY PROSTATE CANCER
     Dosage: 1200 MG, Q3WEEKS
     Route: 042
     Dates: start: 20191223
  9. XL184 [Suspect]
     Active Substance: CABOZANTINIB
     Indication: HORMONE-REFRACTORY PROSTATE CANCER
     Dosage: 40 MG, QD
     Route: 048
     Dates: start: 20191223, end: 20191230
  10. CALCIUM CARBONATE. [Concomitant]
     Active Substance: CALCIUM CARBONATE
  11. LISINOPRIL. [Concomitant]
     Active Substance: LISINOPRIL
  12. OMEPRAZOLE. [Concomitant]
     Active Substance: OMEPRAZOLE
  13. ZINC. [Concomitant]
     Active Substance: ZINC

REACTIONS (2)
  - Cerebrovascular accident [Not Recovered/Not Resolved]
  - Cerebrovascular accident [Not Recovered/Not Resolved]

NARRATIVE: CASE EVENT DATE: 20191230
